FAERS Safety Report 6307586-0 (Version None)
Quarter: 2009Q3

REPORT INFORMATION
  Report Type: 
  Country: None (occurrence: None)
  Receive Date: 20090811
  Receipt Date: 20090730
  Transmission Date: 20100115
  Serious: Yes (Congenital Anomaly)
  Sender: FDA-Public Use
  Company Number: 8049577

PATIENT

DRUGS (7)
  1. KEPPRA [Suspect]
     Indication: EPILEPSY
     Dosage: 1000 MG /D TRP
     Route: 064
     Dates: start: 20081208
  2. FOLIC ACID [Concomitant]
  3. VITAMIN K [Concomitant]
  4. VITAMIN TAB [Concomitant]
  5. SLOW-FE [Concomitant]
  6. CALCIUM [Concomitant]
  7. INSULIN TABLET [Concomitant]

REACTIONS (2)
  - DRUG EXPOSURE DURING PREGNANCY [None]
  - KIDNEY ENLARGEMENT [None]
